FAERS Safety Report 10883522 (Version 1)
Quarter: 2015Q1

REPORT INFORMATION
  Report Type: Spontaneous
  Country: US (occurrence: None)
  Receive Date: 20150226
  Receipt Date: 20150226
  Transmission Date: 20150721
  Serious: Yes (Other)
  Sender: FDA-Public Use
  Company Number: None

PATIENT
  Age: 38 Year
  Sex: Female
  Weight: 73.48 kg

DRUGS (2)
  1. IRON [Concomitant]
     Active Substance: IRON
  2. KENALOG [Suspect]
     Active Substance: TRIAMCINOLONE ACETONIDE
     Indication: HYPERSENSITIVITY
     Dosage: STERIOD INJECTION, ONCE DAILY, INTO THE MUSCLE

REACTIONS (4)
  - Skin disorder [None]
  - Drug administration error [None]
  - Pain [None]
  - Injection site atrophy [None]

NARRATIVE: CASE EVENT DATE: 20140805
